FAERS Safety Report 5321537-7 (Version None)
Quarter: 2007Q1

REPORT INFORMATION
  Report Type: 
  Country: None (occurrence: None)
  Receive Date: 20070215
  Receipt Date: 20061009
  Transmission Date: 20070707
  Serious: No
  Sender: FDA-Public Use
  Company Number: 200616018BWH

PATIENT
  Age: 50 Year
  Sex: Female

DRUGS (11)
  1. NEXAVAR [Suspect]
     Indication: THYROID CANCER METASTATIC
     Dosage: 400 MG, BID, ORAL
     Route: 048
     Dates: start: 20061001, end: 20061008
  2. ZOLOFT [Concomitant]
  3. BUSPIRONE [Concomitant]
  4. LEVOXYL [Concomitant]
  5. CALCITRIOL [Concomitant]
  6. ADVAIR DISKUS 100/50 [Concomitant]
  7. ZYRTEC [Concomitant]
  8. PREVACID [Concomitant]
  9. CALCIUM CHLORIDE [Concomitant]
  10. ADDERALL XR 10 [Concomitant]
  11. NUVARING [Concomitant]

REACTIONS (6)
  - ARTHRALGIA [None]
  - BURNING SENSATION [None]
  - MUSCLE FATIGUE [None]
  - MUSCLE SPASMS [None]
  - MYALGIA [None]
  - PRURITUS [None]
